FAERS Safety Report 6286050-1 (Version None)
Quarter: 2009Q3

REPORT INFORMATION
  Report Type: 
  Country: None (occurrence: None)
  Receive Date: 20090728
  Receipt Date: 20090721
  Transmission Date: 20100115
  Serious: Yes (Other)
  Sender: FDA-Public Use
  Company Number: GB-ALLERGAN-0910212US

PATIENT
  Age: 37 Year
  Sex: Male

DRUGS (3)
  1. CHLORAMPHENICOL [Suspect]
     Indication: CONJUNCTIVITIS
     Dosage: 1 GTT, Q2HR
     Route: 047
  2. CHLORAMPHENICOL [Suspect]
     Dosage: 1 GTT, Q6HR
  3. RABEPRAZOLE SODIUM [Concomitant]
     Dosage: 20 MG, QD

REACTIONS (1)
  - HEPATITIS [None]
